FAERS Safety Report 4395170-8 (Version None)
Quarter: 2004Q3

REPORT INFORMATION
  Report Type: 
  Country: None (occurrence: None)
  Receive Date: 20040706
  Receipt Date: 20040629
  Transmission Date: 20050211
  Serious: Yes (Hospitalization)
  Sender: FDA-Public Use
  Company Number: 2004-06-2014

PATIENT
  Age: 58 Year
  Sex: Female
  Weight: 70 kg

DRUGS (14)
  1. REBETOL [Suspect]
     Indication: HEPATITIS C
     Dosage: 800 MG QD ORAL
     Route: 048
     Dates: start: 20040505
  2. PEGASYS [Suspect]
     Indication: HEPATITIS C
     Dosage: SEE IMAGE
     Route: 058
     Dates: start: 20040505, end: 20040527
  3. PEGASYS [Suspect]
     Indication: HEPATITIS C
     Dosage: SEE IMAGE
     Route: 058
     Dates: start: 20040604
  4. PIRACETAM [Concomitant]
  5. CORTANCYL [Concomitant]
  6. PROGRAF [Concomitant]
  7. SEROPRAM (CITALOPRAM HBR) [Concomitant]
  8. ATARAX [Concomitant]
  9. RIVOTRIL [Concomitant]
  10. IMOVANE [Concomitant]
  11. DIANTALVIC [Concomitant]
  12. UTEPLEX 3 [Concomitant]
  13. DIDRONEL [Concomitant]
  14. CALTRATE [Concomitant]

REACTIONS (1)
  - PANCYTOPENIA [None]
